FAERS Safety Report 14328816 (Version 2)
Quarter: 2017Q4

REPORT INFORMATION
  Report Type: Spontaneous
  Country: IN (occurrence: IN)
  Receive Date: 20171227
  Receipt Date: 20171228
  Transmission Date: 20180321
  Serious: Yes (Hospitalization)
  Sender: FDA-Public Use
  Company Number: IN-JUBILANT CADISTA PHARMACEUTICALS-2017JUB00431

PATIENT
  Age: 5 Year
  Sex: Male
  Weight: 10 kg

DRUGS (1)
  1. CARBAMAZEPINE. [Suspect]
     Active Substance: CARBAMAZEPINE
     Dosage: 1000 MG, ONCE (5 X 200 MG TABLETS)
     Route: 048

REACTIONS (4)
  - Accidental exposure to product by child [Recovered/Resolved]
  - Accidental overdose [Recovered/Resolved]
  - Status epilepticus [Recovered/Resolved]
  - Toxicity to various agents [Recovered/Resolved]
